FAERS Safety Report 4724278-X (Version None)
Quarter: 2005Q3

REPORT INFORMATION
  Report Type: 
  Country: None (occurrence: None)
  Receive Date: 20050720
  Receipt Date: 20050720
  Transmission Date: 20060218
  Serious: Yes (Other)
  Sender: FDA-Public Use
  Company Number: None

PATIENT
  Sex: Male
  Weight: 119.296 kg

DRUGS (4)
  1. NAMENDA [Suspect]
     Indication: HEAD INJURY
     Dosage: 10 MG PO BID
     Route: 048
  2. NAMENDA [Suspect]
     Indication: POST CONCUSSION SYNDROME
     Dosage: 10 MG PO BID
     Route: 048
  3. ARICEPT [Concomitant]
  4. VITAMIN E [Concomitant]

REACTIONS (4)
  - ABNORMAL BEHAVIOUR [None]
  - DISSOCIATIVE DISORDER [None]
  - PSYCHOTIC DISORDER [None]
  - THINKING ABNORMAL [None]
